FAERS Safety Report 12317052 (Version 1)
Quarter: 2016Q2

REPORT INFORMATION
  Report Type: Spontaneous
  Country: JP (occurrence: JP)
  Receive Date: 20160429
  Receipt Date: 20160429
  Transmission Date: 20160815
  Serious: Yes (Other)
  Sender: FDA-Public Use
  Company Number: JP-CIPLA LTD.-2016JP04289

PATIENT

DRUGS (5)
  1. FLUOROURACIL. [Suspect]
     Active Substance: FLUOROURACIL
     Dosage: 2400 MG/KG, INFUSED OVER 46 HRS, ON DAY 1 AND 15, EVERY 4 WEEKS
  2. IRINOTECAN [Suspect]
     Active Substance: IRINOTECAN
     Indication: COLORECTAL CANCER
     Dosage: 150 MG/M2, INFUSED OVER 2 HRS ON DAY 1 AND 15, EVERY 4 WEEKS
     Route: 042
  3. BEVACIZUMAB [Suspect]
     Active Substance: BEVACIZUMAB
     Indication: COLORECTAL CANCER
     Dosage: 5 MG/KG, INFUSED OVER 30 TO 90 MIN, ON DAY 1 AND 15, EVERY 4-WEEKS
     Route: 042
  4. FLUOROURACIL. [Suspect]
     Active Substance: FLUOROURACIL
     Indication: COLORECTAL CANCER
     Dosage: 400 MG/M2, BOLUS, ON DAY 1 AND 15, EVERY 4 WEEKS
     Route: 065
  5. LEUCOVORIN. [Suspect]
     Active Substance: LEUCOVORIN
     Indication: COLORECTAL CANCER
     Dosage: 200 MG/M2, ON DAY 1 AND 15, EVERY 4 WEEKS
     Route: 065

REACTIONS (1)
  - Proteinuria [Unknown]
